FAERS Safety Report 10021096 (Version 3)
Quarter: 2014Q2

REPORT INFORMATION
  Report Type: Spontaneous
  Country: US (occurrence: US)
  Receive Date: 20140319
  Receipt Date: 20140429
  Transmission Date: 20141212
  Serious: Yes (Hospitalization)
  Sender: FDA-Public Use
  Company Number: US-PFIZER INC-2014075508

PATIENT
  Age: 56 Year
  Sex: Male
  Weight: 114.74 kg

DRUGS (8)
  1. SUTENT [Suspect]
     Dosage: 50 MG, CYCLIC (4 WEEKS ON AND 2 WEEKS OFF)
     Dates: start: 20140306
  2. LISINOPRIL [Concomitant]
     Dosage: UNK
  3. HYDROCHLOROTHIAZIDE [Concomitant]
     Dosage: UNK
  4. NOVOLOG [Concomitant]
     Dosage: UNK
  5. LANTUS [Concomitant]
  6. SIMVASTATIN [Concomitant]
     Dosage: UNK
  7. LORTAB [Concomitant]
     Dosage: UNK
  8. TRAMADOL [Concomitant]
     Dosage: UNK

REACTIONS (14)
  - Blood urine present [Unknown]
  - Pyrexia [Unknown]
  - Muscle spasms [Unknown]
  - Nausea [Unknown]
  - Retching [Unknown]
  - Hiccups [Unknown]
  - Pruritus [Unknown]
  - Dry skin [Unknown]
  - Dermatitis acneiform [Unknown]
  - Faeces discoloured [Unknown]
  - White blood cell count decreased [Unknown]
  - Salivary hypersecretion [Unknown]
  - Muscle spasms [Unknown]
  - Oral discomfort [Unknown]
